FAERS Safety Report 7354908-8 (Version None)
Quarter: 2011Q1

REPORT INFORMATION
  Report Type: 
  Country: None (occurrence: None)
  Receive Date: 20110307
  Receipt Date: 20110217
  Transmission Date: 20110831
  Serious: Yes (Life-Threatening, Hospitalization)
  Sender: FDA-Public Use
  Company Number: CTI_01285_2010

PATIENT
  Sex: Male

DRUGS (5)
  1. CLARITHROMYCIN [Concomitant]
  2. MEIACT (MEIACT MS (CEFDITOREN PIVOXIL)) (NOT SPECIFIED) [Suspect]
     Indication: THERMAL BURN
     Dosage: (0.81 G ORAL) (0.9 G ORAL)
     Route: 048
     Dates: start: 20101110, end: 20101118
  3. MEIACT (MEIACT MS (CEFDITOREN PIVOXIL)) (NOT SPECIFIED) [Suspect]
     Indication: NASOPHARYNGITIS
     Dosage: (0.81 G ORAL) (0.9 G ORAL)
     Route: 048
     Dates: start: 20101110, end: 20101118
  4. MEIACT (MEIACT MS (CEFDITOREN PIVOXIL)) (NOT SPECIFIED) [Suspect]
     Indication: THERMAL BURN
     Dosage: (0.81 G ORAL) (0.9 G ORAL)
     Route: 048
     Dates: start: 20101130, end: 20101208
  5. MEIACT (MEIACT MS (CEFDITOREN PIVOXIL)) (NOT SPECIFIED) [Suspect]
     Indication: NASOPHARYNGITIS
     Dosage: (0.81 G ORAL) (0.9 G ORAL)
     Route: 048
     Dates: start: 20101130, end: 20101208

REACTIONS (5)
  - ALTERED STATE OF CONSCIOUSNESS [None]
  - COUGH [None]
  - HYPOGLYCAEMIA [None]
  - DECREASED APPETITE [None]
  - CARNITINE DECREASED [None]
